FAERS Safety Report 14289476 (Version 1)
Quarter: 2017Q4

REPORT INFORMATION
  Report Type: Spontaneous
  Country: US (occurrence: US)
  Receive Date: 20171214
  Receipt Date: 20171214
  Transmission Date: 20180321
  Serious: Yes (Life-Threatening, Hospitalization)
  Sender: FDA-Public Use
  Company Number: None

PATIENT
  Age: 62 Year
  Sex: Female
  Weight: 104 kg

DRUGS (1)
  1. PHENYTOIN. [Suspect]
     Active Substance: PHENYTOIN
     Indication: SEIZURE
     Dosage: OTHER ROUTE:G TUBE?

REACTIONS (3)
  - Blood albumin decreased [None]
  - Bradycardia [None]
  - Anticonvulsant drug level increased [None]

NARRATIVE: CASE EVENT DATE: 20171120
